FAERS Safety Report 11273472 (Version 1)
Quarter: 2015Q2

REPORT INFORMATION
  Report Type: Spontaneous
  Country: US (occurrence: None)
  Receive Date: 20150625
  Receipt Date: 20150625
  Transmission Date: 20150821
  Serious: No
  Sender: FDA-Public Use
  Company Number: A-US2015-114410

PATIENT
  Age: 82 Year
  Sex: Female

DRUGS (3)
  1. OPSUMIT [Suspect]
     Active Substance: MACITENTAN
     Indication: PULMONARY ARTERIAL HYPERTENSION
     Route: 048
  2. TYVASO [Concomitant]
     Active Substance: TREPROSTINIL
  3. TREPROSTINIL DIOLAMIN [Suspect]
     Active Substance: TREPROSTINIL DIOLAMINE
     Indication: PULMONARY ARTERIAL HYPERTENSION

REACTIONS (8)
  - Diarrhoea [None]
  - Nausea [None]
  - Condition aggravated [None]
  - Pulmonary arterial hypertension [None]
  - Headache [None]
  - Peripheral coldness [None]
  - Dyspnoea [None]
  - Dyspnoea exertional [None]

NARRATIVE: CASE EVENT DATE: 20150303
